FAERS Safety Report 10037436 (Version 1)
Quarter: 2014Q1

REPORT INFORMATION
  Report Type: Spontaneous
  Country: NL (occurrence: NL)
  Receive Date: 20140326
  Receipt Date: 20140326
  Transmission Date: 20141002
  Serious: Yes (Other)
  Sender: FDA-Public Use
  Company Number: NL-MYLANLABS-2014S1005909

PATIENT
  Age: 59 Year
  Sex: Male

DRUGS (4)
  1. ALFUZOSINE [Suspect]
     Indication: PRODUCT USED FOR UNKNOWN INDICATION
     Dosage: 1 KEER PER DAG 1 STUK(S)
     Route: 048
     Dates: start: 20140131, end: 20140225
  2. CHLOORTALIDON [Concomitant]
     Dosage: 1 DD 1
     Route: 048
  3. SILKIS [Concomitant]
     Dosage: USED ACCORDING TO INSTRUCTIONS FROM THE DOCTOR
     Route: 003
  4. DOVOBET [Concomitant]
     Dosage: USED ACCORDING TO INSTRUCTIONS OF THE SPECIALIST
     Route: 003

REACTIONS (1)
  - Psoriasis [Unknown]
